FAERS Safety Report 5775223-X (Version None)
Quarter: 2008Q2

REPORT INFORMATION
  Report Type: 
  Country: None (occurrence: None)
  Receive Date: 20080617
  Receipt Date: 20080610
  Transmission Date: 20081010
  Serious: Yes (Hospitalization)
  Sender: FDA-Public Use
  Company Number: B0525045A

PATIENT
  Age: 56 Year
  Sex: Male

DRUGS (2)
  1. TRIZIVIR [Suspect]
     Indication: HIV INFECTION
     Dosage: 2G PER DAY
     Route: 048
  2. GEMFIBROZIL [Concomitant]
     Route: 065

REACTIONS (1)
  - ANGINA PECTORIS [None]
